FAERS Safety Report 5068576-1 (Version None)
Quarter: 2006Q3

REPORT INFORMATION
  Report Type: 
  Country: None (occurrence: None)
  Receive Date: 20060802
  Receipt Date: 20051212
  Transmission Date: 20061208
  Serious: No
  Sender: FDA-Public Use
  Company Number: US-BRISTOL-MYERS SQUIBB COMPANY-13211115

PATIENT
  Age: 88 Year
  Sex: Male
  Weight: 66 kg

DRUGS (8)
  1. COUMADIN [Suspect]
     Dosage: 5 MG TUES, THUR, SAT, SUN; 2.5 MG MON, WED, FRI
     Dates: start: 20050101
  2. LOPRESSOR [Concomitant]
  3. LIPITOR [Concomitant]
  4. ASPIRIN [Concomitant]
  5. ADALAT [Concomitant]
  6. PROTOPIC [Concomitant]
  7. TRAVATAN [Concomitant]
  8. PILOCARPINE [Concomitant]
     Route: 047

REACTIONS (2)
  - CHILLS [None]
  - FEELING COLD [None]
